FAERS Safety Report 8685611 (Version 3)
Quarter: 2013Q1

REPORT INFORMATION
  Report Type: Spontaneous
  Country: US (occurrence: US)
  Receive Date: 20120726
  Receipt Date: 20130226
  Transmission Date: 20140127
  Serious: No
  Sender: FDA-Public Use
  Company Number: US-ASTRAZENECA-2011SE56074

PATIENT
  Age: 53 Year
  Sex: Male
  Weight: 86.2 kg

DRUGS (15)
  1. SEROQUEL [Suspect]
     Indication: BIPOLAR DISORDER
     Route: 048
     Dates: start: 200110
  2. SEROQUEL [Suspect]
     Indication: MENTAL IMPAIRMENT
     Route: 048
     Dates: start: 200110
  3. SEROQUEL [Suspect]
     Indication: BIPOLAR DISORDER
     Route: 048
  4. SEROQUEL [Suspect]
     Indication: MENTAL IMPAIRMENT
     Route: 048
  5. SEROQUEL [Suspect]
     Indication: BIPOLAR DISORDER
     Dosage: TWO TABLETS AT BEDTIME
     Route: 048
  6. SEROQUEL [Suspect]
     Indication: MENTAL IMPAIRMENT
     Dosage: TWO TABLETS AT BEDTIME
     Route: 048
  7. SEROQUEL [Suspect]
     Indication: BIPOLAR DISORDER
     Dosage: MISTAKENLY TAKING THE MEDICATION TWICE IN A DAY
     Route: 048
  8. SEROQUEL [Suspect]
     Indication: MENTAL IMPAIRMENT
     Dosage: MISTAKENLY TAKING THE MEDICATION TWICE IN A DAY
     Route: 048
  9. DEPAKOTE [Concomitant]
     Indication: BIPOLAR DISORDER
  10. TOPOMAX [Concomitant]
     Indication: BIPOLAR DISORDER
  11. METFORMIN [Concomitant]
     Indication: DIABETES MELLITUS
  12. LOVOXIL [Concomitant]
     Indication: THYROID DISORDER
  13. ASPIRIN [Concomitant]
     Indication: CARDIAC DISORDER
  14. SIMVASTATIN [Concomitant]
     Indication: BLOOD CHOLESTEROL ABNORMAL
  15. FISH OIL [Concomitant]
     Indication: CARDIAC DISORDER

REACTIONS (9)
  - Thrombosis [Unknown]
  - Food craving [Unknown]
  - Appetite disorder [Unknown]
  - Somnolence [Unknown]
  - Dry mouth [Unknown]
  - Accident at work [Unknown]
  - Somnolence [Unknown]
  - Off label use [Unknown]
  - Drug administration error [Unknown]
